FAERS Safety Report 20714611 (Version 1)
Quarter: 2022Q2

REPORT INFORMATION
  Report Type: Spontaneous
  Country: US (occurrence: None)
  Receive Date: 20220415
  Receipt Date: 20220415
  Transmission Date: 20220721
  Serious: No
  Sender: FDA-Public Use
  Company Number: None

PATIENT
  Sex: Male
  Weight: 71.1 kg

DRUGS (1)
  1. TOPOTECAN [Suspect]
     Active Substance: TOPOTECAN HYDROCHLORIDE
     Dates: end: 20210917

REACTIONS (4)
  - Hypocalcaemia [None]
  - Hypomagnesaemia [None]
  - Dyspnoea [None]
  - Anaemia [None]

NARRATIVE: CASE EVENT DATE: 20210929
